FAERS Safety Report 7309621-X (Version None)
Quarter: 2011Q1

REPORT INFORMATION
  Report Type: 
  Country: None (occurrence: None)
  Receive Date: 20110223
  Receipt Date: 20110214
  Transmission Date: 20110831
  Serious: Yes (Other)
  Sender: FDA-Public Use
  Company Number: US-BAYER-2011-014221

PATIENT
  Age: 41 Year
  Sex: Male

DRUGS (4)
  1. COUMADIN [Concomitant]
  2. NEXIUM [Concomitant]
  3. AVELOX [Suspect]
     Indication: SINUSITIS
     Dosage: 400 MG, QD
     Route: 048
     Dates: start: 20110130
  4. PRAVASTATIN [Concomitant]

REACTIONS (3)
  - PALPITATIONS [None]
  - HEART RATE INCREASED [None]
  - ANXIETY [None]
